FAERS Safety Report 15755788 (Version 3)
Quarter: 2019Q1

REPORT INFORMATION
  Report Type: Spontaneous
  Country: IT (occurrence: IT)
  Receive Date: 20181224
  Receipt Date: 20190215
  Transmission Date: 20190417
  Serious: Yes (Other)
  Sender: FDA-Public Use
  Company Number: IT-AUROBINDO-AUR-APL-2018-061987

PATIENT

DRUGS (12)
  1. DOLUTEGRAVIR [Suspect]
     Active Substance: DOLUTEGRAVIR
     Indication: HIV INFECTION
     Dosage: UNK
     Route: 065
     Dates: start: 20160101
  2. RALTEGRAVIR. [Suspect]
     Active Substance: RALTEGRAVIR
     Indication: HIV INFECTION
     Dosage: UNK
     Route: 048
     Dates: start: 201511, end: 2016
  3. RALTEGRAVIR. [Suspect]
     Active Substance: RALTEGRAVIR
     Dosage: UNK
     Route: 065
     Dates: start: 2016
  4. DARUNAVIR;RITONAVIR [Suspect]
     Active Substance: DARUNAVIR\RITONAVIR
     Dosage: 2 UNK, PRIOR DOSE OF 600/100 MG TWICE DAILY, RESTARTED AFTER SHE CAME BACK TO ITALY AT UNKNOWN DOSE
     Route: 065
  5. MARAVIROC [Suspect]
     Active Substance: MARAVIROC
     Indication: HIV INFECTION
     Dosage: 150 MILLIGRAM, DAILY
     Route: 065
     Dates: start: 20151101
  6. TENOFOVIR DISOPROXIL FILM COATED TABLETS [Suspect]
     Active Substance: TENOFOVIR DISOPROXIL
     Indication: HIV INFECTION
     Dosage: PRIOR DOSE OF 300 MG ONCE DAILY RESTARTED AFTER SHE CAME BACK TO ITALY AT UNKNOWN DOSE
     Route: 065
     Dates: start: 20151101
  7. DARUNAVIR;RITONAVIR [Suspect]
     Active Substance: DARUNAVIR\RITONAVIR
     Indication: HIV INFECTION
     Dosage: 200 MILLIGRAM, DAILY,600/100 MG TWICE DAILY
     Route: 065
     Dates: start: 20151101
  8. MARAVIROC [Suspect]
     Active Substance: MARAVIROC
     Dosage: 300 MILLIGRAM, ONCE A DAY, 150 MG BID
     Route: 065
     Dates: start: 201511
  9. ZIDOVUDINE. [Concomitant]
     Active Substance: ZIDOVUDINE
     Indication: ANTIVIRAL PROPHYLAXIS
     Dosage: DURING DELIVERY
     Route: 042
  10. DOLUTEGRAVIR [Suspect]
     Active Substance: DOLUTEGRAVIR
     Dosage: 100 MILLIGRAM, ONCE A DAY
     Route: 065
  11. DOLUTEGRAVIR [Suspect]
     Active Substance: DOLUTEGRAVIR
     Dosage: 50 MILLIGRAM, ONCE A DAY
     Route: 065
     Dates: start: 201605
  12. MARAVIROC [Suspect]
     Active Substance: MARAVIROC
     Dosage: PRIOR DOSE OF 150 MG TWICE DAILY, RESTARTED AFTER SHE CAME BACK TO ITALY AT UNKNOWN DOSE
     Route: 065

REACTIONS (6)
  - Caesarean section [Unknown]
  - Pathogen resistance [Not Recovered/Not Resolved]
  - Drug ineffective [Unknown]
  - Normal newborn [Unknown]
  - Antiviral drug level below therapeutic [Not Recovered/Not Resolved]
  - Exposure during pregnancy [Recovered/Resolved]

NARRATIVE: CASE EVENT DATE: 201604
